FAERS Safety Report 9613304 (Version 2)
Quarter: 2013Q3

REPORT INFORMATION
  Report Type: Spontaneous
  Country: BE (occurrence: None)
  Receive Date: 20130919
  Receipt Date: 20130927
  Transmission Date: 20140515
  Serious: Yes (Other)
  Sender: FDA-Public Use
  Company Number: 2013037915

PATIENT
  Age: 45 Year
  Sex: Female

DRUGS (1)
  1. HIZENTRA [Suspect]
     Indication: GASTROINTESTINAL DISORDER
     Dosage: 5 G 1X/WEEK, SUBCUTANEOUS
     Route: 058
     Dates: start: 20130814

REACTIONS (4)
  - Depressed mood [None]
  - Hypotension [None]
  - Diarrhoea [None]
  - Off label use [None]
